FAERS Safety Report 25904794 (Version 2)
Quarter: 2025Q4

REPORT INFORMATION
  Report Type: Spontaneous
  Country: EU (occurrence: EU)
  Receive Date: 20251010
  Receipt Date: 20251101
  Transmission Date: 20260118
  Serious: Yes (Life-Threatening, Hospitalization)
  Sender: ACCORD
  Company Number: EU-MLMSERVICE-20250922-PI653244-00140-1

PATIENT
  Age: 28 Year
  Sex: Female

DRUGS (14)
  1. ETOPOSIDE [Suspect]
     Active Substance: ETOPOSIDE
     Indication: Choriocarcinoma
     Dosage: 100 MG/M2 ON DAYS 1 AND 2, EVERY 14 DAYS,
  2. METHOTREXATE [Suspect]
     Active Substance: METHOTREXATE
     Indication: Choriocarcinoma
     Dosage: 100 MG/M2 INTRAVENOUS BOLUS FOLLOWED BY A 12-HOUR INFUSION OF 200 MG
  3. ACTINOMYCIN D [Suspect]
     Active Substance: DACTINOMYCIN
     Indication: Choriocarcinoma
     Dosage: ON DAY 1 AND 2, EVERY 14 DAYS, 7 CYCLES OF EMA/CO
  4. LEUCOVORIN CALCIUM [Suspect]
     Active Substance: LEUCOVORIN CALCIUM
     Indication: Choriocarcinoma
     Dosage: 15 MG ORALLY FOUR TIMES ON DAY 2, EVERY 14 DAYS, 7 CYCLES OF EMA/CO
     Route: 048
  5. CYCLOPHOSPHAMIDE [Suspect]
     Active Substance: CYCLOPHOSPHAMIDE
     Indication: Choriocarcinoma
     Dosage: 600 MG/M2 INTRAVENOUS ON DAY 8, 7 CYCLES OF EMA/CO
  6. VINCRISTINE [Suspect]
     Active Substance: VINCRISTINE
     Indication: Choriocarcinoma
     Dosage: 1 MG/M2 INTRAVENOUS BOLUS ON DAY 8, EVERY 14 DAYS, 7 CYCLES OF EMA/CO
  7. CYCLOPHOSPHAMIDE [Suspect]
     Active Substance: CYCLOPHOSPHAMIDE
     Indication: Metastases to lung
     Dosage: 600 MG/M2 INTRAVENOUS ON DAY 8, 7 CYCLES OF EMA/CO
  8. VINCRISTINE [Suspect]
     Active Substance: VINCRISTINE
     Indication: Metastases to lung
     Dosage: 1 MG/M2 INTRAVENOUS BOLUS ON DAY 8, EVERY 14 DAYS, 7 CYCLES OF EMA/CO
  9. LEUCOVORIN CALCIUM [Suspect]
     Active Substance: LEUCOVORIN CALCIUM
     Indication: Metastases to lung
     Dosage: 15 MG ORALLY FOUR TIMES ON DAY 2, EVERY 14 DAYS, 7 CYCLES OF EMA/CO
     Route: 048
  10. METHOTREXATE [Suspect]
     Active Substance: METHOTREXATE
     Indication: Choriocarcinoma
     Dosage: 100 MG/M2 INTRAVENOUS BOLUS FOLLOWED BY A 12-HOUR INFUSION OF 200 MG
  11. METHOTREXATE [Suspect]
     Active Substance: METHOTREXATE
     Indication: Metastases to lung
     Dosage: 100 MG/M2 INTRAVENOUS BOLUS FOLLOWED BY A 12-HOUR INFUSION OF 200 MG
  12. ETOPOSIDE [Suspect]
     Active Substance: ETOPOSIDE
     Indication: Metastases to lung
     Dosage: 100 MG/M2 ON DAYS 1 AND 2, EVERY 14 DAYS, 7 CYCLES OF EMA/CO
  13. METHOTREXATE [Suspect]
     Active Substance: METHOTREXATE
     Indication: Metastases to lung
     Dosage: 100 MG/M2 INTRAVENOUS BOLUS FOLLOWED BY A
  14. ACTINOMYCIN D [Suspect]
     Active Substance: DACTINOMYCIN
     Indication: Metastases to lung
     Dosage: ON DAY 1 AND 2, EVERY 14 DAYS, 7 CYCLES OF EMA/CO

REACTIONS (4)
  - Vaginal haemorrhage [Recovering/Resolving]
  - Subclavian vein thrombosis [Unknown]
  - Condition aggravated [Recovering/Resolving]
  - Off label use [Unknown]
